APPROVED DRUG PRODUCT: CHILDREN'S CETIRIZINE HYDROCHLORIDE ALLERGY
Active Ingredient: CETIRIZINE HYDROCHLORIDE
Strength: 5MG/5ML
Dosage Form/Route: SOLUTION;ORAL
Application: A090378 | Product #002
Applicant: CHARTWELL RX SCIENCES LLC
Approved: May 9, 2008 | RLD: No | RS: No | Type: DISCN